FAERS Safety Report 25119460 (Version 1)
Quarter: 2025Q1

REPORT INFORMATION
  Report Type: Report from Study
  Country: CA (occurrence: CA)
  Receive Date: 20250325
  Receipt Date: 20250325
  Transmission Date: 20250408
  Serious: Yes (Death, Hospitalization)
  Sender: ABBVIE
  Company Number: CA-ABBVIE-6190100

PATIENT
  Age: 69 Year
  Sex: Male

DRUGS (24)
  1. VENCLEXTA [Suspect]
     Active Substance: VENETOCLAX
     Indication: Acute myeloid leukaemia
     Dosage: VENETOCLAX ADMINISTRATION SETTING: OUT-PATIENT
     Route: 048
     Dates: start: 20230905, end: 20230905
  2. VENCLEXTA [Suspect]
     Active Substance: VENETOCLAX
     Indication: Acute myeloid leukaemia
     Dosage: VENETOCLAX ADMINISTRATION SETTING: OUT-PATIENT
     Route: 048
     Dates: start: 20230906, end: 20230906
  3. VENCLEXTA [Suspect]
     Active Substance: VENETOCLAX
     Indication: Acute myeloid leukaemia
     Dosage: VENETOCLAX ADMINISTRATION SETTING: OUT-PATIENT
     Route: 048
     Dates: start: 20230907, end: 20230907
  4. VENCLEXTA [Suspect]
     Active Substance: VENETOCLAX
     Indication: Acute myeloid leukaemia
     Dosage: VENETOCLAX ADMINISTRATION SETTING: OUT-PATIENT
     Route: 048
     Dates: start: 20230908, end: 20230919
  5. VENCLEXTA [Suspect]
     Active Substance: VENETOCLAX
     Indication: Acute myeloid leukaemia
     Dosage: VENETOCLAX ADMINISTRATION SETTING: OUT-PATIENT
     Route: 048
     Dates: start: 20231014, end: 20231109
  6. VENCLEXTA [Suspect]
     Active Substance: VENETOCLAX
     Indication: Acute myeloid leukaemia
     Dosage: VENETOCLAX ADMINISTRATION SETTING: OUT-PATIENT
     Route: 048
     Dates: start: 20240220, end: 20240318
  7. AZACITIDINE [Suspect]
     Active Substance: AZACITIDINE
     Indication: Acute myeloid leukaemia
     Route: 065
     Dates: start: 20230905, end: 20230909
  8. AZACITIDINE [Suspect]
     Active Substance: AZACITIDINE
     Indication: Acute myeloid leukaemia
     Route: 065
     Dates: start: 20230910, end: 20230911
  9. AZACITIDINE [Suspect]
     Active Substance: AZACITIDINE
     Indication: Acute myeloid leukaemia
     Route: 065
     Dates: start: 20231012, end: 20231016
  10. AZACITIDINE [Suspect]
     Active Substance: AZACITIDINE
     Indication: Acute myeloid leukaemia
     Route: 065
     Dates: start: 20231017, end: 20231018
  11. AZACITIDINE [Suspect]
     Active Substance: AZACITIDINE
     Indication: Acute myeloid leukaemia
     Route: 065
     Dates: start: 20240220, end: 20240226
  12. AZACITIDINE [Suspect]
     Active Substance: AZACITIDINE
     Indication: Acute myeloid leukaemia
     Route: 065
     Dates: start: 20240326, end: 20240326
  13. AZACITIDINE [Suspect]
     Active Substance: AZACITIDINE
     Indication: Acute myeloid leukaemia
     Route: 065
     Dates: start: 20240328, end: 20240330
  14. AZACITIDINE [Suspect]
     Active Substance: AZACITIDINE
     Indication: Acute myeloid leukaemia
     Route: 065
     Dates: start: 20240401, end: 20240402
  15. POTASSIUM CHLORIDE [Concomitant]
     Active Substance: POTASSIUM CHLORIDE
     Indication: Febrile neutropenia
     Dosage: INJECTION
     Route: 042
     Dates: start: 20230923, end: 20230923
  16. POTASSIUM CHLORIDE [Concomitant]
     Active Substance: POTASSIUM CHLORIDE
     Indication: Febrile neutropenia
     Dosage: LIQUID
     Route: 048
     Dates: start: 20230923, end: 20230923
  17. POTASSIUM CHLORIDE [Concomitant]
     Active Substance: POTASSIUM CHLORIDE
     Indication: Febrile neutropenia
     Dosage: LONG ACTING TABLET
     Route: 048
     Dates: start: 20230926, end: 20230926
  18. POTASSIUM CHLORIDE [Concomitant]
     Active Substance: POTASSIUM CHLORIDE
     Indication: Febrile neutropenia
     Dosage: LONG ACTING TABLET
     Route: 048
     Dates: start: 20230924, end: 20230924
  19. ALLOPURINOL [Concomitant]
     Active Substance: ALLOPURINOL
     Indication: Febrile neutropenia
     Route: 048
     Dates: start: 20230923, end: 20230926
  20. AMOXICILLIN\CLAVULANIC ACID [Concomitant]
     Active Substance: AMOXICILLIN\CLAVULANIC ACID
     Indication: Febrile neutropenia
     Dosage: 1 UNITS
     Dates: start: 20230926, end: 20230926
  21. CIPROFLOXACIN [Concomitant]
     Active Substance: CIPROFLOXACIN
     Indication: Antibiotic therapy
     Route: 048
     Dates: start: 20231006, end: 20231013
  22. COVID-19 vaccine mRNA [Concomitant]
     Indication: COVID-19 immunisation
     Route: 030
  23. CEFTRIAXONE [Concomitant]
     Active Substance: CEFTRIAXONE
     Indication: Febrile neutropenia
     Route: 042
     Dates: start: 20231010, end: 20231013
  24. METRONIDAZOLE [Concomitant]
     Active Substance: METRONIDAZOLE
     Indication: Febrile neutropenia
     Route: 048
     Dates: start: 20231010, end: 20231013

REACTIONS (2)
  - Death [Fatal]
  - Pneumonia [Recovered/Resolved]

NARRATIVE: CASE EVENT DATE: 20240409
